FAERS Safety Report 16001874 (Version 2)
Quarter: 2019Q1

REPORT INFORMATION
  Report Type: Spontaneous
  Country: FR (occurrence: FR)
  Receive Date: 20190225
  Receipt Date: 20190311
  Transmission Date: 20190418
  Serious: Yes (Hospitalization)
  Sender: FDA-Public Use
  Company Number: PHHY2019FR039870

PATIENT
  Sex: Male
  Weight: 61 kg

DRUGS (3)
  1. CELLCEPT [Concomitant]
     Active Substance: MYCOPHENOLATE MOFETIL\MYCOPHENOLATE MOFETIL HYDROCHLORIDE
     Indication: IMMUNOSUPPRESSION
     Dosage: 1000 UNKNOWN UNITS, UNKNOWN FREQ.
     Route: 065
     Dates: start: 20160819, end: 20181030
  2. TACROLIMUS. [Suspect]
     Active Substance: TACROLIMUS
     Indication: IMMUNOSUPPRESSION
     Dosage: 6 MG, QD
     Route: 048
     Dates: start: 20180214, end: 20181226
  3. CORTANCYL [Concomitant]
     Active Substance: PREDNISONE
     Indication: IMMUNOSUPPRESSION
     Dosage: 10 UNKNOWN UNITS, UNKNOWN FREQ.
     Route: 065

REACTIONS (3)
  - Renal impairment [Not Recovered/Not Resolved]
  - Blood creatinine increased [Not Recovered/Not Resolved]
  - Transplant rejection [Not Recovered/Not Resolved]

NARRATIVE: CASE EVENT DATE: 201808
